FAERS Safety Report 25230738 (Version 1)
Quarter: 2025Q2

REPORT INFORMATION
  Report Type: Spontaneous
  Country: US (occurrence: None)
  Receive Date: 20250423
  Receipt Date: 20250423
  Transmission Date: 20250717
  Serious: Yes (Hospitalization)
  Sender: FDA-CTU
  Company Number: None

PATIENT
  Sex: Male

DRUGS (2)
  1. TADALAFIL [Suspect]
     Active Substance: TADALAFIL
     Indication: Pulmonary arterial hypertension
     Dosage: FREQUENCY : DAILY;?
     Route: 048
     Dates: start: 20240418
  2. TYVASO [Suspect]
     Active Substance: TREPROSTINIL

REACTIONS (6)
  - Myocardial infarction [None]
  - Therapy interrupted [None]
  - Dyspnoea exertional [None]
  - Affective disorder [None]
  - Decreased activity [None]
  - Weight abnormal [None]
